FAERS Safety Report 15165866 (Version 2)
Quarter: 2018Q3

REPORT INFORMATION
  Report Type: Report from Study
  Country: US (occurrence: US)
  Receive Date: 20180719
  Receipt Date: 20180905
  Transmission Date: 20181010
  Serious: Yes (Hospitalization, Other)
  Sender: FDA-Public Use
  Company Number: US-SA-2017SA157904

PATIENT
  Age: 67 Year
  Sex: Female

DRUGS (16)
  1. AMPYRA [Concomitant]
     Active Substance: DALFAMPRIDINE
     Indication: GAIT DISTURBANCE
     Dosage: 10 MG,BID
     Route: 065
  2. CYMBALTA [Concomitant]
     Active Substance: DULOXETINE HYDROCHLORIDE
     Indication: DEPRESSION
     Dosage: 60 MG,QD
     Route: 065
  3. BUMETANIDE. [Concomitant]
     Active Substance: BUMETANIDE
     Indication: FLUID RETENTION
     Dosage: UNK UNK,PRN
     Route: 065
  4. ZYRTEC [Concomitant]
     Active Substance: CETIRIZINE HYDROCHLORIDE
     Indication: HYPERSENSITIVITY
     Dosage: UNK UNK,PRN
     Route: 065
  5. CALCIUM [Concomitant]
     Active Substance: CALCIUM
     Dosage: UNK UNK,BIW
     Route: 065
  6. ALEMTUZUMAB [Suspect]
     Active Substance: ALEMTUZUMAB
     Indication: MULTIPLE SCLEROSIS
     Dosage: 12 MG,QD
     Route: 041
     Dates: start: 20170821, end: 20170825
  7. AUBAGIO [Concomitant]
     Active Substance: TERIFLUNOMIDE
     Dosage: UNK
  8. PRAMIPEXOLE. [Concomitant]
     Active Substance: PRAMIPEXOLE
     Indication: RESTLESS LEGS SYNDROME
     Dosage: 25 MG,BID
     Route: 065
  9. LOSARTAN. [Concomitant]
     Active Substance: LOSARTAN
     Indication: HYPERTENSION
     Dosage: 25 MG,QD
     Route: 065
  10. VITAMIN D3 [Concomitant]
     Active Substance: CHOLECALCIFEROL
     Dosage: 1 DF,PRN
     Route: 065
  11. ALIGN [Concomitant]
     Active Substance: BIFIDOBACTERIUM LONGUM SUBSP. INFANTIS
     Dosage: UNK UNK,PRN
     Route: 065
  12. LEVOTHYROXINE. [Concomitant]
     Active Substance: LEVOTHYROXINE
     Indication: THYROID DISORDER
     Dosage: 50 MG,QD
     Route: 065
  13. IBANDRONATE [Concomitant]
     Active Substance: IBANDRONATE SODIUM
     Indication: BONE DISORDER
     Dosage: 159 MG,QM
     Route: 065
  14. POTASSIUM [Concomitant]
     Active Substance: POTASSIUM
     Dosage: UNK UNK,BIW
     Route: 065
  15. VITAMIN B COMPLEX [Concomitant]
     Active Substance: CYANOCOBALAMIN\DEXPANTHENOL\NIACINAMIDE\PYRIDOXINE HYDROCHLORIDE\RIBOFLAVIN 5^-PHOSPHATE SODIUM\THIAMINE HYDROCHLORIDE\VITAMIN B COMPLEX
     Dosage: UNK UNK,TIW
     Route: 065
  16. RANITIDINE. [Concomitant]
     Active Substance: RANITIDINE
     Indication: FATIGUE
     Dosage: 10 MG,BID
     Route: 065

REACTIONS (14)
  - Gastric infection [Recovered/Resolved]
  - Pain [Unknown]
  - Infusion site extravasation [Not Recovered/Not Resolved]
  - Intervertebral disc protrusion [Recovered/Resolved]
  - Sciatica [Unknown]
  - Hospitalisation [Unknown]
  - Nasopharyngitis [Recovered/Resolved]
  - Tearfulness [Not Recovered/Not Resolved]
  - Stress [Not Recovered/Not Resolved]
  - Ephelides [Not Recovered/Not Resolved]
  - Arthralgia [Unknown]
  - Infusion site swelling [Not Recovered/Not Resolved]
  - Laboratory test abnormal [Not Recovered/Not Resolved]
  - Night sweats [Not Recovered/Not Resolved]
